FAERS Safety Report 19628165 (Version 2)
Quarter: 2021Q3

REPORT INFORMATION
  Report Type: Spontaneous
  Country: CA (occurrence: CA)
  Receive Date: 20210729
  Receipt Date: 20210901
  Transmission Date: 20211014
  Serious: Yes (Death)
  Sender: FDA-Public Use
  Company Number: CA-SEPTODONT-2021006457

PATIENT
  Age: 53 Year
  Sex: Female
  Weight: 60 kg

DRUGS (6)
  1. COCAINE [Suspect]
     Active Substance: COCAINE
  2. TYLENOL WITH CODEINE [Suspect]
     Active Substance: ACETAMINOPHEN\CODEINE PHOSPHATE
  3. TYLENOL WITH CODEINE [Suspect]
     Active Substance: ACETAMINOPHEN\CODEINE PHOSPHATE
  4. LIDOCAINE. [Suspect]
     Active Substance: LIDOCAINE
  5. KETAMINE [Suspect]
     Active Substance: KETAMINE
  6. FENTANYL. [Suspect]
     Active Substance: FENTANYL

REACTIONS (4)
  - Blood ethanol [Fatal]
  - Postmortem blood drug level [Fatal]
  - Opiates positive [Fatal]
  - Syncope [Fatal]
